FAERS Safety Report 4319717-2 (Version None)
Quarter: 2004Q1

REPORT INFORMATION
  Report Type: 
  Country: None (occurrence: None)
  Receive Date: 20040316
  Receipt Date: 20040302
  Transmission Date: 20041129
  Serious: Yes (Other)
  Sender: FDA-Public Use
  Company Number: 2004014255

PATIENT
  Age: 25 Year
  Sex: Male
  Weight: 84.369 kg

DRUGS (2)
  1. BENADRYL [Suspect]
     Indication: DRUG HYPERSENSITIVITY
     Dosage: 25 MG QD THEN 50 MG Q6H, ORAL
     Route: 048
     Dates: start: 20040224
  2. FAMOTIDINE [Concomitant]

REACTIONS (2)
  - DIARRHOEA [None]
  - VOMITING [None]
